FAERS Safety Report 17429997 (Version 9)
Quarter: 2021Q1

REPORT INFORMATION
  Report Type: Spontaneous
  Country: US (occurrence: US)
  Receive Date: 20200218
  Receipt Date: 20210219
  Transmission Date: 20210419
  Serious: No
  Sender: FDA-Public Use
  Company Number: US-PFIZER INC-2020066514

PATIENT
  Age: 43 Year
  Sex: Female

DRUGS (5)
  1. XELJANZ [Suspect]
     Active Substance: TOFACITINIB CITRATE
     Dosage: 5 MG, TWICE A DAY
     Route: 048
     Dates: start: 20200515
  2. XELJANZ [Suspect]
     Active Substance: TOFACITINIB CITRATE
     Dosage: 15 MG, DAILY (IN THE EVENING)
     Route: 048
     Dates: start: 202001
  3. XELJANZ [Suspect]
     Active Substance: TOFACITINIB CITRATE
     Dosage: 15 MG/DAY (10 MG IN THE MORNING AND 5 MG IN THE EVENING)
     Route: 048
     Dates: start: 20201001
  4. XELJANZ [Suspect]
     Active Substance: TOFACITINIB CITRATE
     Indication: COLITIS ULCERATIVE
     Dosage: 10 MG, TWICE A DAY
     Route: 048
     Dates: start: 20200126, end: 20200430
  5. XELJANZ [Suspect]
     Active Substance: TOFACITINIB CITRATE
     Dosage: 10 MG, ONCE A DAY
     Route: 048
     Dates: start: 20200501

REACTIONS (10)
  - Product dose omission in error [Unknown]
  - Headache [Recovered/Resolved]
  - Dysmenorrhoea [Not Recovered/Not Resolved]
  - Weight increased [Unknown]
  - Abdominal distension [Unknown]
  - Increased appetite [Unknown]
  - Off label use [Unknown]
  - Fatigue [Unknown]
  - Menstruation irregular [Not Recovered/Not Resolved]
  - Metrorrhagia [Unknown]

NARRATIVE: CASE EVENT DATE: 2020
